FAERS Safety Report 4967534-2 (Version None)
Quarter: 2006Q2

REPORT INFORMATION
  Report Type: 
  Country: None (occurrence: None)
  Receive Date: 20060410
  Receipt Date: 20060406
  Transmission Date: 20061013
  Serious: Yes (Disabling)
  Sender: FDA-Public Use
  Company Number: BR-GLAXOSMITHKLINE-A0600984A

PATIENT
  Age: 28 Year
  Sex: Female
  Weight: 60 kg

DRUGS (2)
  1. BACTROBAN [Suspect]
     Indication: VARICOSE ULCERATION
     Route: 061
     Dates: start: 20060405, end: 20060405
  2. BROCILLIN [Concomitant]
     Dosage: 500MG THREE TIMES PER DAY
     Dates: start: 20060401

REACTIONS (3)
  - ABASIA [None]
  - BURNING SENSATION [None]
  - PAIN [None]
